FAERS Safety Report 9322199 (Version 1)
Quarter: 2013Q2

REPORT INFORMATION
  Report Type: Spontaneous
  Country: CA (occurrence: CA)
  Receive Date: 20130531
  Receipt Date: 20130531
  Transmission Date: 20140414
  Serious: Yes (Other)
  Sender: FDA-Public Use
  Company Number: CA-JNJFOC-20130515152

PATIENT
  Age: 74 Year
  Sex: Male

DRUGS (3)
  1. TYLENOL [Suspect]
     Route: 065
  2. TYLENOL [Suspect]
     Indication: PRODUCT USED FOR UNKNOWN INDICATION
     Route: 065
  3. MORPHINE SULFATE [Suspect]
     Indication: PRODUCT USED FOR UNKNOWN INDICATION

REACTIONS (4)
  - Bacterial infection [Recovered/Resolved]
  - Weight decreased [Recovered/Resolved]
  - Drug ineffective [Recovered/Resolved]
  - Pain [Recovered/Resolved]
